FAERS Safety Report 16997751 (Version 3)
Quarter: 2020Q1

REPORT INFORMATION
  Report Type: Report from Study
  Country: US (occurrence: US)
  Receive Date: 20191106
  Receipt Date: 20200131
  Transmission Date: 20200409
  Serious: Yes (Death, Hospitalization)
  Sender: FDA-Public Use
  Company Number: US-ROCHE-2452684

PATIENT
  Age: 54 Year
  Sex: Female
  Weight: 108.96 kg

DRUGS (6)
  1. ATEZOLIZUMAB. [Suspect]
     Active Substance: ATEZOLIZUMAB
     Indication: METASTATIC CARCINOMA OF THE BLADDER
     Route: 042
     Dates: start: 20190930
  2. GUADECITABINE [Suspect]
     Active Substance: GUADECITABINE
     Indication: METASTATIC CARCINOMA OF THE BLADDER
     Dosage: 04/OCT/2019,LAST DOSE
     Route: 058
     Dates: start: 20190930, end: 20191004
  3. LEVOTHYROXINE. [Concomitant]
     Active Substance: LEVOTHYROXINE
     Route: 065
     Dates: start: 201905
  4. PANTOPRAZOLE [Concomitant]
     Active Substance: PANTOPRAZOLE
     Route: 065
  5. ELIQUIS [Concomitant]
     Active Substance: APIXABAN
     Route: 065
     Dates: start: 201812
  6. PREDNISONE. [Concomitant]
     Active Substance: PREDNISONE
     Route: 065
     Dates: start: 20191014

REACTIONS (1)
  - Ejection fraction decreased [Fatal]

NARRATIVE: CASE EVENT DATE: 20191021
